FAERS Safety Report 20417032 (Version 1)
Quarter: 2022Q1

REPORT INFORMATION
  Report Type: Spontaneous
  Country: US (occurrence: US)
  Receive Date: 20220202
  Receipt Date: 20220202
  Transmission Date: 20220424
  Serious: No
  Sender: FDA-Public Use
  Company Number: US-PFIZER INC-202101548730

PATIENT
  Age: 46 Year
  Sex: Female

DRUGS (2)
  1. IBRANCE [Suspect]
     Active Substance: PALBOCICLIB
     Dosage: 125 MG
     Dates: start: 20211013
  2. IBRANCE [Suspect]
     Active Substance: PALBOCICLIB
     Dosage: 125 MG
     Dates: start: 20211017

REACTIONS (5)
  - Erythema [Unknown]
  - Feeling hot [Unknown]
  - Sensitive skin [Unknown]
  - Rash papular [Unknown]
  - Rash [Recovered/Resolved]
